FAERS Safety Report 8364011-6 (Version None)
Quarter: 2012Q2

REPORT INFORMATION
  Report Type: 
  Country: None (occurrence: None)
  Receive Date: 20120516
  Receipt Date: 20120216
  Transmission Date: 20120825
  Serious: No
  Sender: FDA-Public Use
  Company Number: US-ALEXION-A201200295

PATIENT
  Sex: Male

DRUGS (1)
  1. SOLIRIS [Suspect]
     Indication: PAROXYSMAL NOCTURNAL HAEMOGLOBINURIA
     Route: 042

REACTIONS (7)
  - MUCOUS STOOLS [None]
  - ABNORMAL FAECES [None]
  - NECK PAIN [None]
  - FAECES DISCOLOURED [None]
  - MUSCULOSKELETAL PAIN [None]
  - DIARRHOEA [None]
  - BOWEL MOVEMENT IRREGULARITY [None]
